FAERS Safety Report 25538310 (Version 1)
Quarter: 2025Q3

REPORT INFORMATION
  Report Type: Spontaneous
  Country: US (occurrence: US)
  Receive Date: 20250710
  Receipt Date: 20250710
  Transmission Date: 20251021
  Serious: No
  Sender: Kenvue
  Company Number: US-KENVUE-20250609552

PATIENT
  Sex: Female

DRUGS (2)
  1. WOMENS ROGAINE UNSCENTED [Suspect]
     Active Substance: MINOXIDIL
     Indication: Alopecia
     Dosage: 1 SQUEEZE ON HER FINGER, ONCE A DAY
     Route: 061
     Dates: start: 2025
  2. WOMENS ROGAINE UNSCENTED [Suspect]
     Active Substance: MINOXIDIL
     Dosage: SQUEEZED THE AMOUNT ONTO FINGERTIPS - CONSUMER COULD NOT PROVIDE A MORE ACCURATE MEASUREMENT, ONCE A
     Route: 061
     Dates: start: 202506, end: 202506

REACTIONS (2)
  - Peripheral swelling [Not Recovered/Not Resolved]
  - Incorrect dose administered [Unknown]

NARRATIVE: CASE EVENT DATE: 20250101
